FAERS Safety Report 26090907 (Version 1)
Quarter: 2025Q4

REPORT INFORMATION
  Report Type: Spontaneous
  Country: US (occurrence: US)
  Receive Date: 20251126
  Receipt Date: 20251126
  Transmission Date: 20260118
  Serious: No
  Sender: TARO
  Company Number: US-TARO PHARMACEUTICALS USA INC.-2025TAR00030

PATIENT

DRUGS (2)
  1. CLOBETASOL PROPIONATE [Suspect]
     Active Substance: CLOBETASOL PROPIONATE
     Indication: Psoriasis
     Dosage: BID, THE SIZE OF A THUMBNAIL
     Route: 061
     Dates: start: 20241210
  2. Calcipotriene Topical Solution 0.005% [Concomitant]
     Indication: Psoriasis
     Dosage: UNK
     Route: 065

REACTIONS (3)
  - Burning sensation [Recovered/Resolved]
  - Product quality issue [Unknown]
  - Drug ineffective [Unknown]
